FAERS Safety Report 13917044 (Version 1)
Quarter: 2017Q3

REPORT INFORMATION
  Report Type: Spontaneous
  Country: RS (occurrence: RS)
  Receive Date: 20170829
  Receipt Date: 20170829
  Transmission Date: 20171127
  Serious: Yes (Hospitalization)
  Sender: FDA-Public Use
  Company Number: PHHY2017RS125835

PATIENT
  Age: 53 Year
  Sex: Female

DRUGS (1)
  1. BROMOCRIPTINE [Suspect]
     Active Substance: BROMOCRIPTINE
     Indication: PROLACTIN-PRODUCING PITUITARY TUMOUR
     Dosage: 15 MG, QD
     Route: 065

REACTIONS (7)
  - Hypotonia [Unknown]
  - Fall [Unknown]
  - Depression [Unknown]
  - Emotional disorder [Unknown]
  - Cataplexy [Recovered/Resolved]
  - Intentional self-injury [Unknown]
  - Sleep apnoea syndrome [Unknown]
